FAERS Safety Report 25185275 (Version 1)
Quarter: 2025Q2

REPORT INFORMATION
  Report Type: Spontaneous
  Country: US (occurrence: US)
  Receive Date: 20250410
  Receipt Date: 20250410
  Transmission Date: 20250717
  Serious: No
  Sender: TAKEDA
  Company Number: US-TAKEDA-2025TUS033060

PATIENT
  Age: 39 Year
  Sex: Female
  Weight: 73.923 kg

DRUGS (11)
  1. ADDERALL XR [Suspect]
     Active Substance: AMPHETAMINE ASPARTATE\AMPHETAMINE SULFATE\DEXTROAMPHETAMINE SACCHARATE\DEXTROAMPHETAMINE SULFATE
     Indication: Product used for unknown indication
  2. DEXTROAMPHETAMINE [Suspect]
     Active Substance: DEXTROAMPHETAMINE
     Indication: Product used for unknown indication
  3. DEXTROAMPHETAMINE [Suspect]
     Active Substance: DEXTROAMPHETAMINE
  4. LUMRYZ [Suspect]
     Active Substance: SODIUM OXYBATE
     Indication: Narcolepsy
     Dosage: 4.5 GRAM, QD
     Dates: start: 202502, end: 202502
  5. LUMRYZ [Suspect]
     Active Substance: SODIUM OXYBATE
     Dosage: 6 GRAM, QD
     Dates: start: 202502, end: 202503
  6. LUMRYZ [Suspect]
     Active Substance: SODIUM OXYBATE
     Dosage: 7.5 GRAM, QD
     Dates: start: 202503
  7. ALCOHOL [Concomitant]
     Active Substance: ALCOHOL
  8. ALBUTEROL SULFATE [Concomitant]
     Active Substance: ALBUTEROL SULFATE
  9. IBUPROFEN [Concomitant]
     Active Substance: IBUPROFEN
  10. THEANINE [Concomitant]
     Active Substance: THEANINE
  11. ALLEGRA ALLERGY [Concomitant]
     Active Substance: FEXOFENADINE HYDROCHLORIDE

REACTIONS (6)
  - Intentional dose omission [Unknown]
  - Product distribution issue [Unknown]
  - Feeling abnormal [Unknown]
  - Vertigo [Unknown]
  - Dizziness [Recovered/Resolved]
  - Blood pressure increased [Unknown]
